FAERS Safety Report 11005188 (Version 1)
Quarter: 2015Q2

REPORT INFORMATION
  Report Type: Spontaneous
  Country: US (occurrence: US)
  Receive Date: 20150409
  Receipt Date: 20150409
  Transmission Date: 20150821
  Serious: No
  Sender: FDA-Public Use
  Company Number: US-BAYER-2015-117917

PATIENT
  Age: 83 Year
  Sex: Female
  Weight: 82 kg

DRUGS (3)
  1. ALEVE [Suspect]
     Active Substance: NAPROXEN SODIUM
     Indication: ARTHRITIS
     Dosage: 2 DF, BID
     Route: 048
     Dates: start: 2014
  2. BAYER GENUINE ASPIRIN [Suspect]
     Active Substance: ASPIRIN
     Indication: ARTHRITIS
     Dosage: UNK
     Route: 048
  3. VITAMIN C [Concomitant]
     Active Substance: ASCORBIC ACID
     Dosage: UNK

REACTIONS (4)
  - Extra dose administered [None]
  - Abdominal discomfort [Recovered/Resolved]
  - Drug ineffective [None]
  - Medication error [None]

NARRATIVE: CASE EVENT DATE: 2014
